FAERS Safety Report 4544906-1 (Version None)
Quarter: 2005Q1

REPORT INFORMATION
  Report Type: 
  Country: None (occurrence: None)
  Receive Date: 20050104
  Receipt Date: 20041220
  Transmission Date: 20050727
  Serious: Yes (Death)
  Sender: FDA-Public Use
  Company Number: 9516

PATIENT
  Age: 89 Year
  Sex: Male

DRUGS (6)
  1. METHOTREXATE [Suspect]
     Indication: PEMPHIGUS
     Dosage: 10 MG WEEKLY PO
     Route: 048
     Dates: start: 20040610, end: 20040624
  2. PREDNISOLONE [Concomitant]
  3. FRUSEMIDE [Concomitant]
  4. CHLORPHENIRAMINE MALEATE [Concomitant]
  5. ATENOLOL [Concomitant]
  6. DIPYRIDAMOLE/ASPIRIN [Concomitant]

REACTIONS (4)
  - BONE MARROW DEPRESSION [None]
  - NEUTROPENIA [None]
  - PANCYTOPENIA [None]
  - STAPHYLOCOCCAL SEPSIS [None]
